FAERS Safety Report 8518518-9 (Version None)
Quarter: 2012Q3

REPORT INFORMATION
  Report Type: 
  Country: None (occurrence: None)
  Receive Date: 20120718
  Receipt Date: 20120710
  Transmission Date: 20120928
  Serious: Yes (Hospitalization)
  Sender: FDA-Public Use
  Company Number: JP-BRISTOL-MYERS SQUIBB COMPANY-16395691

PATIENT
  Age: 63 Year
  Sex: Male
  Weight: 54 kg

DRUGS (7)
  1. ASPIRIN [Concomitant]
     Dosage: THERY DATES:BEFORE 04JAN2011
     Route: 048
  2. TAMSULOSIN HCL [Concomitant]
     Dosage: THERY DATES:BEFORE 04JAN2011
     Route: 048
  3. ORENCIA [Suspect]
     Indication: RHEUMATOID ARTHRITIS
     Dosage: POSTPONED FOR 2 WEEKS AND CONTINUED
     Route: 041
     Dates: start: 20111116
  4. PREDNISOLONE [Concomitant]
     Dosage: THERY DATES:BEFORE 04JAN2011
     Route: 048
  5. RABEPRAZOLE SODIUM [Concomitant]
     Dosage: THERY DATES:BEFORE 04JAN2011
     Route: 048
  6. AZULFIDINE [Concomitant]
     Dosage: AZULFIDINE -EN THERY DATES:BEFORE 04JAN2011
     Route: 048
  7. RIMATIL [Concomitant]
     Dosage: TABS, THERY DATES:BEFORE 04JAN2011
     Route: 048

REACTIONS (3)
  - JOINT INSTABILITY [None]
  - GALLBLADDER EMPYEMA [None]
  - URINARY TRACT INFECTION [None]
